FAERS Safety Report 7772178-3 (Version None)
Quarter: 2011Q3

REPORT INFORMATION
  Report Type: 
  Country: None (occurrence: None)
  Receive Date: 20110922
  Receipt Date: 20110304
  Transmission Date: 20111222
  Serious: Yes (Hospitalization)
  Sender: FDA-Public Use
  Company Number: US-ASTRAZENECA-2011SE12316

PATIENT
  Age: 63 Year
  Sex: Female
  Weight: 68 kg

DRUGS (7)
  1. GENUMET [Concomitant]
     Indication: ANTICOAGULANT THERAPY
     Dosage: 5/500 DAILY
  2. CETALOPRAN [Concomitant]
  3. WELCO [Concomitant]
     Indication: GASTRIC DISORDER
  4. CETALOPRAN [Concomitant]
     Indication: DEPRESSION
  5. PLAVIX [Concomitant]
     Indication: ANTICOAGULANT THERAPY
  6. SKELAXIN [Concomitant]
     Indication: MUSCLE DISORDER
  7. SEROQUEL XR [Suspect]
     Indication: SLEEP DISORDER
     Route: 048

REACTIONS (1)
  - CEREBROVASCULAR ACCIDENT [None]
